FAERS Safety Report 6399864-4 (Version None)
Quarter: 2009Q4

REPORT INFORMATION
  Report Type: 
  Country: None (occurrence: None)
  Receive Date: 20091014
  Receipt Date: 20070312
  Transmission Date: 20100525
  Serious: Yes (Other)
  Sender: FDA-Public Use
  Company Number: US-ASTRAZENECA-2007UW20416

PATIENT
  Age: 44 Year
  Sex: Female
  Weight: 92.1 kg

DRUGS (23)
  1. SEROQUEL [Suspect]
     Indication: BIPOLAR DISORDER
     Dosage: 300-500 MG
     Route: 048
     Dates: start: 19970101
  2. SEROQUEL [Suspect]
     Indication: OBSESSIVE-COMPULSIVE DISORDER
     Dosage: 300-500 MG
     Route: 048
     Dates: start: 19970101
  3. SEROQUEL [Suspect]
     Dosage: 300 MG TO 600 MG
     Route: 048
     Dates: start: 20020213
  4. SEROQUEL [Suspect]
     Dosage: 300 MG TO 600 MG
     Route: 048
     Dates: start: 20020213
  5. RISPERDAL [Concomitant]
     Dates: start: 20060801
  6. ZYPREXA [Concomitant]
  7. ABILIFY [Concomitant]
  8. HALDOL [Concomitant]
     Dates: start: 20070101
  9. NEURONTIN [Concomitant]
     Dates: start: 20030101
  10. VICODIN [Concomitant]
     Indication: PAIN
     Dosage: 5 MG TO 20 MG
     Dates: start: 20030101
  11. DEPAKOTE ER [Concomitant]
     Indication: BIPOLAR DISORDER
     Dosage: 250 MG TO 1250 MG
     Route: 048
     Dates: start: 20020212
  12. SERZONE [Concomitant]
     Dosage: 200 MG TO 500 MG
     Dates: start: 20020212
  13. SYNTHROID [Concomitant]
     Indication: HYPOTHYROIDISM
     Dosage: 50 MCG TO 150 MCG
     Dates: start: 20020212
  14. KLONOPIN [Concomitant]
     Indication: DEPRESSION
     Dosage: 1 MG TO 6 MG
     Dates: start: 20020212
  15. KLONOPIN [Concomitant]
     Indication: SLEEP DISORDER
     Dosage: 1 MG TO 6 MG
     Dates: start: 20020212
  16. ZOLOFT [Concomitant]
     Dosage: 50 MG TO 100 MG
     Route: 048
     Dates: start: 20020212
  17. MOTRIN [Concomitant]
     Route: 048
     Dates: start: 20020715
  18. DIABETA [Concomitant]
     Dosage: 2.5 MG TO 15 MG
     Route: 048
     Dates: start: 20020101
  19. GLUCOPHAGE [Concomitant]
     Route: 048
     Dates: start: 20020101
  20. PREMARIN [Concomitant]
     Indication: HORMONE REPLACEMENT THERAPY
     Dates: start: 20020101
  21. COUMADIN [Concomitant]
     Dosage: 2 MG TABLET DISPENSED
     Route: 048
     Dates: start: 20050725
  22. LANTUS [Concomitant]
     Dosage: 20 UNITS TO 56 UNITS
     Dates: start: 20040101
  23. NOVOLIN N [Concomitant]
     Dates: start: 20050101

REACTIONS (8)
  - BLOOD GLUCOSE INCREASED [None]
  - DIABETES MELLITUS [None]
  - DIABETES MELLITUS INADEQUATE CONTROL [None]
  - DIABETIC NEUROPATHY [None]
  - HYPERGLYCAEMIA [None]
  - HYPERNATRAEMIA [None]
  - NEUROPATHY PERIPHERAL [None]
  - TYPE 2 DIABETES MELLITUS [None]
